FAERS Safety Report 8911262 (Version 2)
Quarter: 2012Q4

REPORT INFORMATION
  Report Type: 
  Country: US (occurrence: US)
  Receive Date: 20121116
  Receipt Date: 20121218
  Transmission Date: 20130627
  Serious: Yes (Other)
  Sender: FDA-Public Use
  Company Number: US-BRISTOL-MYERS SQUIBB COMPANY-17104225

PATIENT
  Age: 50 Year
  Sex: Male

DRUGS (2)
  1. BARACLUDE TABS 0.5 MG [Suspect]
     Indication: HEPATITIS B
     Dosage: One tablet a day
     Route: 048
     Dates: start: 20120117
  2. VIAGRA [Concomitant]

REACTIONS (4)
  - Infertility [Unknown]
  - Pregnancy [Recovered/Resolved]
  - Abortion spontaneous [Unknown]
  - Exposure via father [Unknown]
